FAERS Safety Report 8563310-2 (Version None)
Quarter: 2012Q3

REPORT INFORMATION
  Report Type: 
  Country: None (occurrence: None)
  Receive Date: 20120802
  Receipt Date: 20120729
  Transmission Date: 20120928
  Serious: No
  Sender: FDA-Public Use
  Company Number: US-AMGEN-USASP2012034837

PATIENT
  Age: 67 Year
  Sex: Female

DRUGS (2)
  1. METHOTREXATE [Concomitant]
     Dosage: 15 MG, 2 TIMES/WK
     Dates: start: 20120101
  2. ENBREL [Suspect]
     Indication: RHEUMATOID ARTHRITIS
     Dosage: 50 MG, QWK
     Dates: start: 20120321

REACTIONS (2)
  - RHEUMATOID ARTHRITIS [None]
  - WRONG TECHNIQUE IN DRUG USAGE PROCESS [None]
